FAERS Safety Report 7420193-1 (Version None)
Quarter: 2011Q2

REPORT INFORMATION
  Report Type: 
  Country: None (occurrence: None)
  Receive Date: 20110418
  Receipt Date: 20110407
  Transmission Date: 20111010
  Serious: Yes (Hospitalization)
  Sender: FDA-Public Use
  Company Number: DE-B.I. PHARMACEUTICALS,INC./RIDGEFIELD-2011-DE-02369DE

PATIENT
  Sex: Male
  Weight: 60 kg

DRUGS (11)
  1. HYDROCHLOROTHIAZIDE [Concomitant]
     Indication: HYPERTENSION
     Dosage: 12.5 MG
     Route: 048
  2. LYRICA [Concomitant]
     Indication: NEURALGIA
     Dosage: 50 MG
     Route: 048
  3. METO-SUCCINAT [Concomitant]
     Indication: HYPERTENSION
     Dosage: 23.75 MG
     Route: 048
  4. PANTOPRAZOLE SODIUM [Concomitant]
     Indication: GASTROOESOPHAGEAL REFLUX DISEASE
     Dosage: 40 MG
     Route: 048
  5. L-THYROX [Concomitant]
     Indication: HYPERTHYROIDISM
     Dosage: 100 MCG
     Route: 048
  6. DABIGATRAN [Suspect]
     Indication: CEREBROVASCULAR ACCIDENT PROPHYLAXIS
     Dosage: BLINDED DOSE
     Route: 048
     Dates: start: 20090215, end: 20101215
  7. AMIODARONE HCL [Concomitant]
     Indication: ARRHYTHMIA
     Dosage: 200 MG
     Route: 048
  8. DIGITOXIN TAB [Concomitant]
     Indication: CARDIAC FAILURE
     Dosage: 0.07 MG
     Route: 048
  9. DABIGATRAN [Suspect]
     Indication: ATRIAL FIBRILLATION
  10. ONE ALPHA [Concomitant]
     Indication: VITAMIN D DEFICIENCY
     Dosage: 0.25 MCG
     Route: 048
  11. TORASEMID [Concomitant]
     Indication: MYOCARDIAL OEDEMA
     Dosage: 40 MG
     Route: 048

REACTIONS (1)
  - RENAL FAILURE CHRONIC [None]
